FAERS Safety Report 15400152 (Version 2)
Quarter: 2018Q3

REPORT INFORMATION
  Report Type: Report from Study
  Country: None (occurrence: US)
  Receive Date: 20180919
  Receipt Date: 20180924
  Transmission Date: 20181010
  Serious: Yes (Hospitalization)
  Sender: FDA-Public Use
  Company Number: US-ABBVIE-18K-163-2483908-00

PATIENT
  Age: 65 Year
  Sex: Male

DRUGS (1)
  1. HUMIRA [Suspect]
     Active Substance: ADALIMUMAB
     Indication: PSORIASIS
     Route: 058
     Dates: end: 2018

REACTIONS (7)
  - Cardiac failure congestive [Unknown]
  - Abdominal discomfort [Unknown]
  - Abdominal distension [Unknown]
  - Chronic obstructive pulmonary disease [Recovering/Resolving]
  - Rash macular [Unknown]
  - Abdominal pain upper [Unknown]
  - Skin ulcer [Unknown]

NARRATIVE: CASE EVENT DATE: 201808
